FAERS Safety Report 9221007 (Version 6)
Quarter: 2016Q1

REPORT INFORMATION
  Report Type: Spontaneous
  Country: US (occurrence: US)
  Receive Date: 20130409
  Receipt Date: 20160304
  Transmission Date: 20160526
  Serious: Yes (Hospitalization, Other)
  Sender: FDA-Public Use
  Company Number: US-009507513-1304USA001401

PATIENT
  Sex: Female

DRUGS (8)
  1. PRAVASTATIN [Concomitant]
     Active Substance: PRAVASTATIN\PRAVASTATIN SODIUM
     Indication: BLOOD PRESSURE ABNORMAL
     Dosage: UNK, UNKNOWN
     Route: 065
     Dates: start: 1995
  2. ALENDRONATE SODIUM. [Suspect]
     Active Substance: ALENDRONATE SODIUM
     Indication: OSTEOPOROSIS
     Dosage: 70 MG, QW
     Route: 048
     Dates: start: 20071214
  3. FOSAMAX [Suspect]
     Active Substance: ALENDRONATE SODIUM
     Indication: OSTEOPOROSIS
     Dosage: 70 MG, QW
     Route: 048
     Dates: start: 20060228
  4. CENTRUM SILVER ULTRA WOMENS [Concomitant]
     Indication: ROUTINE HEALTH MAINTENANCE
     Dosage: 1 TABLET, QD
     Route: 048
  5. DILTIZEM [Concomitant]
     Indication: BLOOD CHOLESTEROL INCREASED
     Dosage: UNK, UNKNOWN
     Route: 065
     Dates: start: 1996
  6. FOSAMAX PLUS D [Suspect]
     Active Substance: ALENDRONATE SODIUM\CHOLECALCIFEROL
     Indication: OSTEOPOROSIS
     Dosage: UNK, UNKNOWN
     Route: 048
  7. ACTONEL [Suspect]
     Active Substance: RISEDRONATE SODIUM
     Indication: OSTEOPOROSIS
     Dosage: 70 MG, QW
     Route: 048
     Dates: start: 20070209, end: 20100428
  8. FOSAMAX [Suspect]
     Active Substance: ALENDRONATE SODIUM
     Indication: OSTEOPENIA
     Dosage: UNK, UNKNOWN
     Route: 048
     Dates: start: 2004, end: 2007

REACTIONS (30)
  - Arthralgia [Unknown]
  - Osteoarthritis [Unknown]
  - Cardiac failure congestive [Unknown]
  - Aortic aneurysm [Unknown]
  - Tonsillitis [Unknown]
  - Spinal osteoarthritis [Unknown]
  - Platelet count decreased [Unknown]
  - Hypertension [Unknown]
  - Hysterectomy [Unknown]
  - Gout [Unknown]
  - Pneumonia [Unknown]
  - Fall [Unknown]
  - Bursitis [Unknown]
  - Coronary artery disease [Unknown]
  - Humerus fracture [Unknown]
  - Femur fracture [Unknown]
  - Lower limb fracture [Recovered/Resolved with Sequelae]
  - Periprosthetic fracture [Recovered/Resolved with Sequelae]
  - Bulimia nervosa [Unknown]
  - Femur fracture [Recovered/Resolved]
  - Appendicectomy [Unknown]
  - Radial nerve injury [Unknown]
  - Knee deformity [Unknown]
  - Cataract [Unknown]
  - Asthma [Unknown]
  - Femoral neck fracture [Recovering/Resolving]
  - Neck pain [Unknown]
  - Atrial fibrillation [Unknown]
  - Hernia repair [Unknown]
  - Catheterisation cardiac [Unknown]

NARRATIVE: CASE EVENT DATE: 20040402
